FAERS Safety Report 6877005-4 (Version None)
Quarter: 2010Q3

REPORT INFORMATION
  Report Type: 
  Country: None (occurrence: None)
  Receive Date: 20100727
  Receipt Date: 20100715
  Transmission Date: 20110219
  Serious: Yes (Hospitalization)
  Sender: FDA-Public Use
  Company Number: FR-ASTRAZENECA-2010SE33031

PATIENT
  Age: 27643 Day
  Sex: Male

DRUGS (20)
  1. OMEPRAZOLE [Suspect]
     Route: 048
  2. PLAVIX [Interacting]
     Route: 048
     Dates: end: 20100323
  3. PLAVIX [Interacting]
     Route: 048
     Dates: start: 20100326
  4. TRIMEBUTINE [Concomitant]
     Route: 048
  5. KAYEXALATE [Concomitant]
     Route: 048
  6. ISOPTIN [Concomitant]
     Route: 048
  7. BECOTIDE [Concomitant]
     Route: 055
  8. PIASCLEDINE [Concomitant]
     Route: 048
  9. SERETIDE [Concomitant]
     Route: 055
  10. NITROGLYCERIN [Concomitant]
     Route: 055
  11. KARDEGIC [Concomitant]
     Route: 048
  12. SYMBICORT [Concomitant]
     Dosage: 400 MCG 2 INHALATIONS TWO TIMES A DAY
     Route: 055
  13. CRESTOR [Concomitant]
     Route: 048
  14. RAMIPRIL [Concomitant]
     Route: 048
  15. EZETROL [Concomitant]
     Route: 048
  16. UVEDOSE [Concomitant]
     Route: 048
  17. STRUCTUM [Concomitant]
     Route: 048
  18. PERMIXON [Concomitant]
     Route: 048
  19. DEROXAT [Concomitant]
     Route: 048
  20. ALPRAZOLAM [Concomitant]

REACTIONS (4)
  - DRUG INEFFECTIVE [None]
  - DRUG INTERACTION [None]
  - THERAPY CESSATION [None]
  - TRANSIENT ISCHAEMIC ATTACK [None]
